FAERS Safety Report 23814659 (Version 3)
Quarter: 2024Q3

REPORT INFORMATION
  Report Type: Report from Study
  Country: US (occurrence: US)
  Receive Date: 20240503
  Receipt Date: 20240703
  Transmission Date: 20241017
  Serious: Yes (Other)
  Sender: ROCHE
  Company Number: US-ROCHE-3554879

PATIENT
  Age: 67 Year
  Sex: Male

DRUGS (1)
  1. ROZLYTREK [Suspect]
     Active Substance: ENTRECTINIB
     Indication: Pancreatic carcinoma
     Dosage: TAKE 3 CAPSULE(S) BY MOUTH DAILY. SWALLOW CAPSULES WHOLE; DO NOT OPEN,CRUSH, CHEW, OR DISSOLVE THE C
     Route: 048

REACTIONS (3)
  - Off label use [Unknown]
  - Pancreatic carcinoma recurrent [Unknown]
  - Diabetes mellitus [Unknown]
